FAERS Safety Report 4774381-3 (Version None)
Quarter: 2005Q3

REPORT INFORMATION
  Report Type: 
  Country: None (occurrence: None)
  Receive Date: 20050914
  Receipt Date: 20050405
  Transmission Date: 20060218
  Serious: Yes (Death, Hospitalization)
  Sender: FDA-Public Use
  Company Number: 163-20785-05040078

PATIENT
  Age: 50 Year
  Sex: Male

DRUGS (3)
  1. THALOMID [Suspect]
     Indication: RENAL CELL CARCINOMA STAGE UNSPECIFIED
     Dosage: SEE IMAGE
     Route: 048
     Dates: start: 20050224, end: 20050101
  2. THALOMID [Suspect]
     Indication: RENAL CELL CARCINOMA STAGE UNSPECIFIED
     Dosage: SEE IMAGE
     Route: 048
     Dates: start: 20050101, end: 20050410
  3. INTERLEUKIN (INTERLEUKINS) [Concomitant]

REACTIONS (7)
  - ASTHENIA [None]
  - DEATH [None]
  - DISEASE PROGRESSION [None]
  - DYSPNOEA [None]
  - METASTASIS [None]
  - OEDEMA [None]
  - PAIN [None]
